FAERS Safety Report 21391178 (Version 1)
Quarter: 2022Q3

REPORT INFORMATION
  Report Type: Spontaneous
  Country: US (occurrence: US)
  Receive Date: 20220929
  Receipt Date: 20220929
  Transmission Date: 20221027
  Serious: Yes (Hospitalization, Other)
  Sender: FDA-Public Use
  Company Number: US-SLATE RUN PHARMACEUTICALS-22US001342

PATIENT

DRUGS (18)
  1. VANCOMYCIN HYDROCHLORIDE [Suspect]
     Active Substance: VANCOMYCIN HYDROCHLORIDE
     Indication: Prophylaxis
     Dosage: 15 MILLIGRAM PER KILOGRAM, OVER 60 MIN
  2. FENTANYL [Suspect]
     Active Substance: FENTANYL
     Indication: Catheterisation cardiac
     Dosage: UNK, REDOSED DURING REWARMING, APPROXIMATELY 20 MIN BEFORE AORTIC CROSS-CLAMP REMOVAL
  3. FENTANYL [Suspect]
     Active Substance: FENTANYL
     Indication: General anaesthesia
     Dosage: UNK
  4. VECURONIUM [Suspect]
     Active Substance: VECURONIUM BROMIDE
     Indication: General anaesthesia
     Dosage: UNK, REDOSED DURING REWARMING, APPROXIMATELY 20 MIN BEFORE AORTIC CROSS-CLAMP REMOVAL
  5. VECURONIUM [Suspect]
     Active Substance: VECURONIUM BROMIDE
     Dosage: UNK
  6. CEFEPIME [Suspect]
     Active Substance: CEFEPIME HYDROCHLORIDE
     Indication: Prophylaxis
     Dosage: 2 GRAM
  7. AMINOCAPROIC ACID [Suspect]
     Active Substance: AMINOCAPROIC ACID
     Indication: Procoagulant therapy
     Dosage: 5 GRAM WITH A 1-G/H INFUSION THROUGHOUT THE SURGERY
  8. LIDOCAINE [Suspect]
     Active Substance: LIDOCAINE
     Indication: General anaesthesia
  9. MIDAZOLAM [Suspect]
     Active Substance: MIDAZOLAM
     Indication: Catheterisation cardiac
     Dosage: UNK
  10. MIDAZOLAM [Suspect]
     Active Substance: MIDAZOLAM
     Indication: General anaesthesia
  11. ALBUTEROL [Concomitant]
     Active Substance: ALBUTEROL
     Indication: Asthma
     Dosage: UNK
     Route: 007
  12. ALBUTEROL [Concomitant]
     Active Substance: ALBUTEROL
     Dosage: UNK
     Route: 007
  13. ALBUTEROL [Concomitant]
     Active Substance: ALBUTEROL
     Dosage: UNK
     Route: 055
  14. PROPOFOL [Concomitant]
     Active Substance: PROPOFOL
     Indication: General anaesthesia
     Dosage: UNK
  15. PROPOFOL [Concomitant]
     Active Substance: PROPOFOL
     Indication: Sedation
     Dosage: UNK
  16. PROPOFOL [Concomitant]
     Active Substance: PROPOFOL
     Indication: Vasodilation procedure
  17. ISOFLURANE [Concomitant]
     Active Substance: ISOFLURANE
     Indication: Anaesthesia
  18. UNSPECIFIED INGREDIENT [Concomitant]
     Active Substance: UNSPECIFIED INGREDIENT
     Indication: Anaesthesia
     Route: 055

REACTIONS (6)
  - Hypoxia [Recovered/Resolved]
  - Bronchospasm [Recovering/Resolving]
  - Atelectasis [Unknown]
  - Pleural effusion [Unknown]
  - Vasoplegia syndrome [Unknown]
  - Anaphylactic reaction [Recovered/Resolved]
